FAERS Safety Report 6825834-5 (Version None)
Quarter: 2010Q3

REPORT INFORMATION
  Report Type: 
  Country: None (occurrence: None)
  Receive Date: 20100708
  Receipt Date: 20100708
  Transmission Date: 20110219
  Serious: Yes (Hospitalization, Disabling)
  Sender: FDA-Public Use
  Company Number: None

PATIENT
  Sex: Female
  Weight: 57.6068 kg

DRUGS (1)
  1. LEVETIRACETAM [Suspect]
     Indication: EPILEPSY
     Dosage: 2000 MG 1000 MG A.M.  1000 MG P.M. 300 MG (CUT BACK) 500 MG A.M.
     Dates: start: 20090801

REACTIONS (4)
  - BRAIN INJURY [None]
  - CONVULSION [None]
  - HEART RATE INCREASED [None]
  - INSOMNIA [None]
